FAERS Safety Report 9537553 (Version 1)
Quarter: 2013Q3

REPORT INFORMATION
  Report Type: Spontaneous
  Country: US (occurrence: US)
  Receive Date: 20130919
  Receipt Date: 20130919
  Transmission Date: 20140515
  Serious: Yes (Other)
  Sender: FDA-Public Use
  Company Number: US-BAYER-2013-113172

PATIENT
  Sex: Male

DRUGS (1)
  1. XOFIGO [Suspect]
     Indication: PROSTATE CANCER METASTATIC
     Dosage: UNK
     Dates: start: 2013

REACTIONS (1)
  - Tumour flare [None]
